FAERS Safety Report 5726115-3 (Version None)
Quarter: 2008Q2

REPORT INFORMATION
  Report Type: 
  Country: None (occurrence: None)
  Receive Date: 20080501
  Receipt Date: 20080501
  Transmission Date: 20081010
  Serious: Yes (Life-Threatening, Hospitalization, Disabling, Other)
  Sender: FDA-Public Use
  Company Number: None

PATIENT
  Age: 70 Year
  Sex: Male
  Weight: 99.7913 kg

DRUGS (1)
  1. DIGOXIN [Suspect]
     Indication: CARDIAC DISORDER
     Dosage: TAKE ONE TABLET DAILY
     Dates: start: 20030708, end: 20080428

REACTIONS (6)
  - EJECTION FRACTION DECREASED [None]
  - FATIGUE [None]
  - HEADACHE [None]
  - MALAISE [None]
  - PALPITATIONS [None]
  - TREMOR [None]
